FAERS Safety Report 7241148-6 (Version None)
Quarter: 2011Q1

REPORT INFORMATION
  Report Type: 
  Country: None (occurrence: None)
  Receive Date: 20110124
  Receipt Date: 20110114
  Transmission Date: 20110831
  Serious: Yes (Hospitalization, Other)
  Sender: FDA-Public Use
  Company Number: US-AMGEN-KDL436535

PATIENT
  Sex: Female

DRUGS (2)
  1. AVAPRO [Concomitant]
  2. PROLIA [Suspect]
     Indication: OSTEOPOROSIS POSTMENOPAUSAL
     Dosage: 60 MG, UNK

REACTIONS (15)
  - CONFUSIONAL STATE [None]
  - HYPERSOMNIA [None]
  - ACTIVITIES OF DAILY LIVING IMPAIRED [None]
  - GAIT DISTURBANCE [None]
  - BACK PAIN [None]
  - PAIN IN EXTREMITY [None]
  - ABDOMINAL PAIN LOWER [None]
  - DYSSTASIA [None]
  - ANAEMIA [None]
  - MASS [None]
  - GENERAL PHYSICAL HEALTH DETERIORATION [None]
  - RENAL FAILURE [None]
  - FATIGUE [None]
  - DYSPEPSIA [None]
  - B-CELL LYMPHOMA [None]
